FAERS Safety Report 14751550 (Version 1)
Quarter: 2018Q2

REPORT INFORMATION
  Report Type: Spontaneous
  Country: JP (occurrence: JP)
  Receive Date: 20180412
  Receipt Date: 20180412
  Transmission Date: 20180711
  Serious: Yes (Death, Hospitalization, Other)
  Sender: FDA-Public Use
  Company Number: JP-009507513-1802JPN002632J

PATIENT
  Age: 70 Year
  Sex: Male

DRUGS (1)
  1. KEYTRUDA [Suspect]
     Active Substance: PEMBROLIZUMAB
     Indication: LUNG ADENOCARCINOMA
     Dosage: 200 MG, Q3W
     Route: 041
     Dates: start: 20170704, end: 20170815

REACTIONS (5)
  - Muscular weakness [Unknown]
  - Malignant neoplasm progression [Fatal]
  - Hypophysitis [Unknown]
  - Hypophagia [Unknown]
  - Thirst [Unknown]

NARRATIVE: CASE EVENT DATE: 2017
